FAERS Safety Report 11467521 (Version 1)
Quarter: 2015Q3

REPORT INFORMATION
  Report Type: Report from Study
  Country: JP (occurrence: JP)
  Receive Date: 20150908
  Receipt Date: 20150908
  Transmission Date: 20151125
  Serious: Yes (Other)
  Sender: FDA-Public Use
  Company Number: PHJP2015JP015321

PATIENT
  Age: 40 Year
  Sex: Female
  Weight: 64 kg

DRUGS (31)
  1. ZYPREXA [Concomitant]
     Active Substance: OLANZAPINE
     Indication: SCHIZOPHRENIA, DISORGANISED TYPE
     Dosage: 20 MG, QD
     Route: 048
     Dates: start: 20111020, end: 20130626
  2. MAGLAX [Concomitant]
     Active Substance: MAGNESIUM OXIDE
     Indication: CONSTIPATION
     Dosage: 1980 MG, QD
     Route: 048
  3. YODEL [Concomitant]
     Active Substance: SENNA LEAF
     Indication: CONSTIPATION
     Dosage: 160 MG, QD
     Route: 048
  4. CLOZARIL [Suspect]
     Active Substance: CLOZAPINE
     Dosage: 75 MG, QD
     Route: 048
     Dates: start: 20130626, end: 20130628
  5. ZYPREXA [Concomitant]
     Active Substance: OLANZAPINE
     Dosage: 15 MG, QD
     Route: 048
     Dates: start: 20130627, end: 20130703
  6. LIMAS [Concomitant]
     Active Substance: LITHIUM CARBONATE
     Indication: SCHIZOPHRENIA, DISORGANISED TYPE
     Dosage: 600 MG, QD
     Route: 048
     Dates: start: 20111122, end: 20130707
  7. CLOZARIL [Suspect]
     Active Substance: CLOZAPINE
     Dosage: 150 MG, QD
     Route: 048
     Dates: start: 20130703, end: 20130706
  8. DEPAKENE [Concomitant]
     Active Substance: VALPROIC ACID
     Indication: SCHIZOPHRENIA, DISORGANISED TYPE
     Dosage: 800 MG, QD
     Route: 048
     Dates: start: 20120703, end: 20130707
  9. LANDSEN [Concomitant]
     Active Substance: CLONAZEPAM
     Indication: SCHIZOPHRENIA, DISORGANISED TYPE
     Dosage: 6 MG, QD
     Route: 048
     Dates: start: 20111016, end: 20130707
  10. LIMAS [Concomitant]
     Active Substance: LITHIUM CARBONATE
     Dosage: 1000 MG, QD
     Route: 048
  11. JZOLOFT [Concomitant]
     Active Substance: SERTRALINE HYDROCHLORIDE
     Indication: PRODUCT USED FOR UNKNOWN INDICATION
     Dosage: 100 MG, QD
     Route: 048
  12. TOPINA [Concomitant]
     Active Substance: TOPIRAMATE
     Dosage: 100 MG, QD
     Route: 048
     Dates: start: 20150507, end: 20150603
  13. SETOUS [Concomitant]
     Dosage: 50 MG, QD
     Route: 048
     Dates: start: 20130703, end: 20130703
  14. ZYPREXA [Concomitant]
     Active Substance: OLANZAPINE
     Dosage: 5 MG, QD
     Route: 048
     Dates: start: 20130704, end: 20130705
  15. ROHYPNOL [Concomitant]
     Active Substance: FLUNITRAZEPAM
     Indication: SCHIZOPHRENIA, DISORGANISED TYPE
     Dosage: 2 MG, QD
     Route: 048
     Dates: start: 20130628
  16. SHINLUCK [Concomitant]
     Active Substance: SODIUM PICOSULFATE
     Indication: CONSTIPATION
     Dosage: 5 MG, QD
     Route: 048
  17. TOPINA [Concomitant]
     Active Substance: TOPIRAMATE
     Dosage: 150 MG, QD
     Route: 048
     Dates: start: 20150604, end: 20150616
  18. CLOZARIL [Suspect]
     Active Substance: CLOZAPINE
     Indication: SCHIZOPHRENIA, DISORGANISED TYPE
     Dosage: 12.5 MG, QD
     Route: 048
     Dates: start: 20130621, end: 20130621
  19. CLOZARIL [Suspect]
     Active Substance: CLOZAPINE
     Dosage: 50 MG, QD
     Route: 048
     Dates: start: 20130624, end: 20130625
  20. CLOZARIL [Suspect]
     Active Substance: CLOZAPINE
     Dosage: 150 MG, QD
     Route: 048
     Dates: end: 20140507
  21. SETOUS [Concomitant]
     Dosage: 25 MG, QD
     Route: 048
     Dates: start: 20130704, end: 20130705
  22. TOPINA [Concomitant]
     Active Substance: TOPIRAMATE
     Dosage: 300 MG, QD
     Route: 048
     Dates: start: 20150702
  23. CLOZARIL [Suspect]
     Active Substance: CLOZAPINE
     Dosage: 25 MG, QD
     Route: 048
     Dates: start: 20130622, end: 20130623
  24. CLOZARIL [Suspect]
     Active Substance: CLOZAPINE
     Dosage: 100 MG, QD
     Route: 048
     Dates: start: 20130629, end: 20130630
  25. CLOZARIL [Suspect]
     Active Substance: CLOZAPINE
     Dosage: 175 MG, QD
     Route: 048
     Dates: start: 20130707, end: 20130708
  26. CLOZARIL [Suspect]
     Active Substance: CLOZAPINE
     Dosage: 125 MG, QD
     Route: 048
     Dates: start: 20140508
  27. DORAL [Concomitant]
     Active Substance: QUAZEPAM
     Indication: SCHIZOPHRENIA, DISORGANISED TYPE
     Dosage: 20 MG, QD
     Route: 048
     Dates: start: 20120419, end: 20130627
  28. CLOZARIL [Suspect]
     Active Substance: CLOZAPINE
     Dosage: 125 MG, QD
     Route: 048
     Dates: start: 20130701, end: 20130702
  29. SETOUS [Concomitant]
     Indication: SCHIZOPHRENIA, DISORGANISED TYPE
     Dosage: 75 MG, QD
     Route: 048
     Dates: start: 20120731, end: 20130702
  30. TOPINA [Concomitant]
     Active Substance: TOPIRAMATE
     Indication: SCHIZOPHRENIA, DISORGANISED TYPE
     Dosage: 50 MG, QD
     Route: 048
     Dates: start: 20150423, end: 20150506
  31. TOPINA [Concomitant]
     Active Substance: TOPIRAMATE
     Dosage: 250 MG, QD
     Route: 048
     Dates: start: 20150617, end: 20150701

REACTIONS (2)
  - Obesity [Not Recovered/Not Resolved]
  - Liver disorder [Not Recovered/Not Resolved]

NARRATIVE: CASE EVENT DATE: 201401
